FAERS Safety Report 6186167-6 (Version None)
Quarter: 2009Q2

REPORT INFORMATION
  Report Type: 
  Country: None (occurrence: None)
  Receive Date: 20090507
  Receipt Date: 20090507
  Transmission Date: 20091009
  Serious: Yes (Other)
  Sender: FDA-Public Use
  Company Number: None

PATIENT
  Age: 36 Year
  Sex: Female
  Weight: 58.0604 kg

DRUGS (1)
  1. NORCO [Suspect]
     Indication: PROCEDURAL PAIN
     Dosage: 5MG/325MG AS NEEDED FOR PAIN PO
     Route: 048
     Dates: start: 20090205, end: 20090208

REACTIONS (7)
  - BLISTER [None]
  - LIP SWELLING [None]
  - OEDEMA PERIPHERAL [None]
  - RASH ERYTHEMATOUS [None]
  - RASH GENERALISED [None]
  - RASH PRURITIC [None]
  - SKIN DISCOLOURATION [None]
